FAERS Safety Report 13639805 (Version 1)
Quarter: 2017Q2

REPORT INFORMATION
  Report Type: Spontaneous
  Country: US (occurrence: US)
  Receive Date: 20170609
  Receipt Date: 20170609
  Transmission Date: 20170830
  Serious: Yes (Disabling)
  Sender: FDA-Public Use
  Company Number: US-ROCHE-1501456

PATIENT
  Sex: Female

DRUGS (4)
  1. KLONOPIN [Suspect]
     Active Substance: CLONAZEPAM
     Route: 065
  2. KLONOPIN [Suspect]
     Active Substance: CLONAZEPAM
     Indication: MUSCLE SPASMS
     Route: 065
  3. KLONOPIN [Suspect]
     Active Substance: CLONAZEPAM
     Route: 065
  4. XANAX [Concomitant]
     Active Substance: ALPRAZOLAM
     Dosage: NIGHTLY
     Route: 065

REACTIONS (1)
  - Back pain [Not Recovered/Not Resolved]
